FAERS Safety Report 7460138-1 (Version None)
Quarter: 2011Q2

REPORT INFORMATION
  Report Type: 
  Country: None (occurrence: None)
  Receive Date: 20110505
  Receipt Date: 20110427
  Transmission Date: 20111010
  Serious: Yes (Hospitalization, Other)
  Sender: FDA-Public Use
  Company Number: US-ELI_LILLY_AND_COMPANY-US201104008065

PATIENT
  Age: 70 Year
  Sex: Female

DRUGS (3)
  1. BYETTA [Suspect]
     Dosage: UNK
     Dates: start: 20060302, end: 20110427
  2. LANTUS [Concomitant]
  3. HUMALOG [Concomitant]

REACTIONS (3)
  - OFF LABEL USE [None]
  - PANCREATITIS [None]
  - HOSPITALISATION [None]
